FAERS Safety Report 9108944 (Version 1)
Quarter: 2013Q1

REPORT INFORMATION
  Report Type: Spontaneous
  Country: US (occurrence: US)
  Receive Date: 20130222
  Receipt Date: 20130222
  Transmission Date: 20140127
  Serious: No
  Sender: FDA-Public Use
  Company Number: US-009507513-1302USA010202

PATIENT
  Age: 63 None
  Sex: Female

DRUGS (7)
  1. ZOCOR [Suspect]
     Indication: BLOOD CHOLESTEROL
     Dosage: 40 MG, QD
     Route: 048
     Dates: start: 201102, end: 20130105
  2. NITROSTAT [Concomitant]
  3. THEO-24 [Concomitant]
  4. VASOPRIL (ENALAPRIL MALEATE) [Concomitant]
  5. HYDROCHLOROTHIAZIDE [Concomitant]
  6. COUMADIN [Concomitant]
  7. ULTRAM [Concomitant]

REACTIONS (2)
  - Blood cholesterol increased [Not Recovered/Not Resolved]
  - Drug dose omission [Unknown]
